FAERS Safety Report 10016730 (Version 1)
Quarter: 2014Q1

REPORT INFORMATION
  Report Type: Report from Study
  Country: US (occurrence: US)
  Receive Date: 20140318
  Receipt Date: 20140318
  Transmission Date: 20141002
  Serious: Yes (Hospitalization, Other)
  Sender: FDA-Public Use
  Company Number: PHEH2014US004973

PATIENT
  Sex: Female
  Weight: 63.49 kg

DRUGS (13)
  1. GILENYA [Suspect]
     Indication: MULTIPLE SCLEROSIS
     Dosage: 0.5 MG, QD
     Route: 048
  2. VIT D [Concomitant]
  3. VYTORIN [Concomitant]
  4. NASONEX [Concomitant]
  5. TIZANIDINE [Concomitant]
  6. BACLOFEN [Concomitant]
  7. ASA [Concomitant]
  8. FEXOFENADINE [Concomitant]
  9. IBUPROFEN [Concomitant]
  10. TYLENOL [Concomitant]
  11. MULTIVIT//VITAMINS NOS [Concomitant]
  12. AMPYRA [Concomitant]
  13. BOTOX [Concomitant]

REACTIONS (4)
  - Clostridium difficile colitis [Recovering/Resolving]
  - Paralysis [Recovering/Resolving]
  - Muscle spasms [Recovering/Resolving]
  - Muscle spasticity [Recovering/Resolving]
